FAERS Safety Report 5605458-8 (Version None)
Quarter: 2008Q1

REPORT INFORMATION
  Report Type: 
  Country: None (occurrence: None)
  Receive Date: 20080124
  Receipt Date: 20080103
  Transmission Date: 20080703
  Serious: Yes (Other)
  Sender: FDA-Public Use
  Company Number: 100#03#2008-00157

PATIENT
  Age: 81 Year
  Sex: Male

DRUGS (2)
  1. CARBOPLATIN [Suspect]
     Indication: DRUG USE FOR UNKNOWN INDICATION
  2. XELODA [Suspect]
     Indication: DRUG USE FOR UNKNOWN INDICATION

REACTIONS (1)
  - TRANSIENT ISCHAEMIC ATTACK [None]
